FAERS Safety Report 6616503-5 (Version None)
Quarter: 2010Q1

REPORT INFORMATION
  Report Type: 
  Country: None (occurrence: None)
  Receive Date: 20100305
  Receipt Date: 20100222
  Transmission Date: 20100710
  Serious: Yes (Other)
  Sender: FDA-Public Use
  Company Number: US-PFIZER INC-2010023006

PATIENT
  Sex: Female
  Weight: 61 kg

DRUGS (1)
  1. CHANTIX [Suspect]
     Indication: SMOKING CESSATION THERAPY
     Dosage: 0.5 MG, 1X/DAY
     Route: 048
     Dates: start: 20091001, end: 20100201

REACTIONS (7)
  - CONFUSIONAL STATE [None]
  - DEPRESSION [None]
  - MULTIPLE SCLEROSIS [None]
  - MUSCLE SPASMS [None]
  - MUSCULAR WEAKNESS [None]
  - SLEEP DISORDER [None]
  - VISION BLURRED [None]
